FAERS Safety Report 5464566-5 (Version None)
Quarter: 2007Q3

REPORT INFORMATION
  Report Type: 
  Country: None (occurrence: None)
  Receive Date: 20070921
  Receipt Date: 20070913
  Transmission Date: 20080115
  Serious: Yes (Hospitalization, Other)
  Sender: FDA-Public Use
  Company Number: US-AMGEN-STX243181

PATIENT
  Sex: Female

DRUGS (2)
  1. ENBREL [Suspect]
     Indication: RHEUMATOID ARTHRITIS
     Route: 058
     Dates: start: 20011126
  2. ARAVA [Concomitant]
     Route: 048

REACTIONS (6)
  - PAIN IN EXTREMITY [None]
  - PYREXIA [None]
  - RHEUMATOID ARTHRITIS [None]
  - SCOLIOSIS [None]
  - SPINAL OPERATION [None]
  - THROMBOSIS [None]
